FAERS Safety Report 18458072 (Version 1)
Quarter: 2020Q4

REPORT INFORMATION
  Report Type: Spontaneous
  Country: US (occurrence: US)
  Receive Date: 20201103
  Receipt Date: 20201103
  Transmission Date: 20210114
  Serious: No
  Sender: FDA-Public Use
  Company Number: US-FARMAPROD-202009-1200

PATIENT
  Sex: Male
  Weight: 88 kg

DRUGS (27)
  1. MOXATAG [Concomitant]
     Active Substance: AMOXICILLIN
     Dosage: MULTIPHASIC TABLET
  2. OMEPRAZOLE. [Concomitant]
     Active Substance: OMEPRAZOLE
     Dosage: DELAY RELEASE CAPSULE
  3. IRON [Concomitant]
     Active Substance: IRON
     Dosage: 325(65) MG
  4. ERYTHROMYCIN. [Concomitant]
     Active Substance: ERYTHROMYCIN
  5. FUROSEMIDE. [Concomitant]
     Active Substance: FUROSEMIDE
  6. MOXIFLOXACIN. [Concomitant]
     Active Substance: MOXIFLOXACIN
  7. METFORMIN [Concomitant]
     Active Substance: METFORMIN HYDROCHLORIDE
     Dosage: EXTENDED RELEASE GASTRIC
  8. BLINK TEARS [Concomitant]
     Active Substance: POLYETHYLENE GLYCOL 400
  9. LECITHIN [Concomitant]
     Active Substance: LECITHIN
  10. CALCIUM/VITAMINE D [Concomitant]
     Dosage: 500-1000 MG
  11. LATANOPROST. [Concomitant]
     Active Substance: LATANOPROST
  12. METOPROLOL TARTRATE. [Concomitant]
     Active Substance: METOPROLOL TARTRATE
  13. FISH OIL [Concomitant]
     Active Substance: FISH OIL
  14. ZYRTEC [Concomitant]
     Active Substance: CETIRIZINE HYDROCHLORIDE
  15. GABAPENTIN. [Concomitant]
     Active Substance: GABAPENTIN
  16. OXERVATE [Suspect]
     Active Substance: CENEGERMIN-BKBJ
     Indication: NEUROTROPHIC KERATOPATHY
     Route: 047
     Dates: start: 20200828
  17. TOUJEO [Concomitant]
     Active Substance: INSULIN GLARGINE
     Dosage: 300/ML PEN INJECTION
  18. BENAZEPRIL HCL [Concomitant]
     Active Substance: BENAZEPRIL HYDROCHLORIDE
  19. DORZOLAMIDE/TIMOLOL [Concomitant]
     Active Substance: DORZOLAMIDE\TIMOLOL
  20. VALACYCLOVIR [Concomitant]
     Active Substance: VALACYCLOVIR HYDROCHLORIDE
  21. ATORVASTATIN CALCIUM. [Concomitant]
     Active Substance: ATORVASTATIN CALCIUM
  22. GENTEAL TEARS (MILD) [Concomitant]
     Active Substance: DEXTRAN 70\HYPROMELLOSE 2910 (4000 MPA.S)
     Dosage: 0.1%-0.3%
  23. FIBER [Concomitant]
     Active Substance: PSYLLIUM HUSK
  24. MULTIVITAMINES [Concomitant]
     Active Substance: VITAMINS
  25. POTASSIUM CHLORIDE. [Concomitant]
     Active Substance: POTASSIUM CHLORIDE
     Dosage: EXTENDED RELEASE TABLET
  26. VICTOZA [Concomitant]
     Active Substance: LIRAGLUTIDE
     Dosage: 0.6 MG/0.1 PEN INJECTION
  27. HYDRALAZINE HCL [Concomitant]
     Active Substance: HYDRALAZINE HYDROCHLORIDE

REACTIONS (1)
  - Eye pain [Unknown]
